FAERS Safety Report 23134367 (Version 1)
Quarter: 2023Q4

REPORT INFORMATION
  Report Type: Spontaneous
  Country: US (occurrence: None)
  Receive Date: 20231031
  Receipt Date: 20231031
  Transmission Date: 20240110
  Serious: Yes (Hospitalization, Disabling, Other)
  Sender: FDA-Public Use
  Company Number: None

PATIENT
  Age: 29 Year
  Sex: Male
  Weight: 88.65 kg

DRUGS (6)
  1. ATOMOXETINE [Suspect]
     Active Substance: ATOMOXETINE
     Indication: Product used for unknown indication
     Dosage: OTHER QUANTITY : 1 CAPSULE(S);?FREQUENCY : DAILY;?
     Route: 048
     Dates: start: 20230715
  2. DEPAKOTE [Suspect]
     Active Substance: DIVALPROEX SODIUM
  3. ABILIFY [Suspect]
     Active Substance: ARIPIPRAZOLE
  4. Celxa [Concomitant]
  5. ZYPREXA [Concomitant]
     Active Substance: OLANZAPINE
  6. XANAX [Concomitant]
     Active Substance: ALPRAZOLAM

REACTIONS (5)
  - Delusion [None]
  - Psychotic disorder [None]
  - Suicide attempt [None]
  - Intentional self-injury [None]
  - Intentional self-injury [None]

NARRATIVE: CASE EVENT DATE: 20231008
